FAERS Safety Report 8880301 (Version 1)
Quarter: 2012Q4

REPORT INFORMATION
  Report Type: 
  Country: DE (occurrence: DE)
  Receive Date: 20121031
  Receipt Date: 20121031
  Transmission Date: 20130627
  Serious: Yes (Hospitalization, Other)
  Sender: FDA-Public Use
  Company Number: GXKR2012DE003370

PATIENT

DRUGS (1)
  1. TOPIRAMATE [Suspect]
     Indication: EPILEPSY
     Dosage: Maternal dose: 125 [mg/d (50-0-75) ]
     Route: 064

REACTIONS (3)
  - Grand mal convulsion [Recovered/Resolved]
  - Hypocalcaemia [Unknown]
  - Atrioventricular block first degree [Not Recovered/Not Resolved]
